FAERS Safety Report 5233555-8 (Version None)
Quarter: 2007Q1

REPORT INFORMATION
  Report Type: 
  Country: None (occurrence: None)
  Receive Date: 20070206
  Receipt Date: 20070122
  Transmission Date: 20070707
  Serious: Yes (Hospitalization)
  Sender: FDA-Public Use
  Company Number: CERZ-11495

PATIENT
  Age: 54 Year
  Sex: Male

DRUGS (9)
  1. CEREZYME [Suspect]
     Indication: GAUCHER'S DISEASE
     Dosage: 42 U/KG IV
     Route: 042
     Dates: start: 20041015
  2. IRON [Concomitant]
  3. LTACE [Concomitant]
  4. HYDROCHLOROTHIAZIDE [Concomitant]
  5. NORVASC [Concomitant]
  6. DILTIAZEM [Concomitant]
  7. DOXAZOSIN MESYLATE [Concomitant]
  8. LIPITOR [Concomitant]
  9. METFORMIN HCL [Concomitant]

REACTIONS (6)
  - ENTEROBACTER INFECTION [None]
  - OPEN WOUND [None]
  - OSTEOMYELITIS [None]
  - SKIN GRAFT [None]
  - STAPHYLOCOCCAL INFECTION [None]
  - WOUND HAEMORRHAGE [None]
